FAERS Safety Report 19698307 (Version 3)
Quarter: 2021Q4

REPORT INFORMATION
  Report Type: Spontaneous
  Country: US (occurrence: US)
  Receive Date: 20210813
  Receipt Date: 20211018
  Transmission Date: 20220303
  Serious: No
  Sender: FDA-Public Use
  Company Number: US-BIOGEN-2021BI01022683

PATIENT
  Age: 46 Year
  Sex: Female

DRUGS (2)
  1. VUMERITY [Suspect]
     Active Substance: DIROXIMEL FUMARATE
     Indication: Multiple sclerosis
     Dosage: 231MG TWICE DAILY FOR 7 DAYS 6/12/2021, THEN 462MG TWICE DAILY THEREAFTER.
     Route: 048
     Dates: start: 20210612
  2. VUMERITY [Suspect]
     Active Substance: DIROXIMEL FUMARATE
     Route: 048
     Dates: start: 20210619

REACTIONS (15)
  - Product dose omission in error [Unknown]
  - Decreased appetite [Unknown]
  - Fatigue [Unknown]
  - Abdominal distension [Unknown]
  - Urinary hesitation [Unknown]
  - Dizziness [Unknown]
  - Contusion [Unknown]
  - Limb mass [Unknown]
  - Multiple sclerosis [Unknown]
  - Blood bilirubin decreased [Unknown]
  - Aspartate aminotransferase decreased [Unknown]
  - Constipation [Recovered/Resolved]
  - Diarrhoea [Unknown]
  - Hot flush [Recovered/Resolved]
  - Nausea [Recovered/Resolved]

NARRATIVE: CASE EVENT DATE: 20210101
